FAERS Safety Report 9987186 (Version 2)
Quarter: 2014Q2

REPORT INFORMATION
  Report Type: Spontaneous
  Country: ID (occurrence: ID)
  Receive Date: 20140307
  Receipt Date: 20140604
  Transmission Date: 20141212
  Serious: Yes (Death, Other)
  Sender: FDA-Public Use
  Company Number: ID-ABBVIE-14P-079-1208285-00

PATIENT
  Age: 8 Day
  Sex: Female

DRUGS (1)
  1. SURVANTA [Suspect]
     Indication: ACUTE RESPIRATORY DISTRESS SYNDROME
     Route: 042
     Dates: start: 20140212, end: 20140220

REACTIONS (2)
  - Death [Fatal]
  - Acute respiratory distress syndrome [Unknown]
